FAERS Safety Report 13822407 (Version 1)
Quarter: 2017Q3

REPORT INFORMATION
  Report Type: Spontaneous
  Country: US (occurrence: US)
  Receive Date: 20170801
  Receipt Date: 20170801
  Transmission Date: 20171127
  Serious: Yes (Hospitalization, Other)
  Sender: FDA-Public Use
  Company Number: US-MYLANLABS-2017M1046756

PATIENT

DRUGS (2)
  1. FLECAINIDE [Suspect]
     Active Substance: FLECAINIDE
     Indication: INTENTIONAL OVERDOSE
     Route: 065
  2. METOPROLOL. [Suspect]
     Active Substance: METOPROLOL
     Indication: INTENTIONAL OVERDOSE
     Route: 065

REACTIONS (4)
  - Intentional overdose [Unknown]
  - Bradycardia [Unknown]
  - Hypotension [Unknown]
  - Atrial fibrillation [Unknown]
